FAERS Safety Report 7491708-2 (Version None)
Quarter: 2011Q2

REPORT INFORMATION
  Report Type: 
  Country: None (occurrence: None)
  Receive Date: 20110518
  Receipt Date: 20110518
  Transmission Date: 20111010
  Serious: Yes (Other)
  Sender: FDA-Public Use
  Company Number: None

PATIENT
  Age: 63 Year
  Sex: Female
  Weight: 90 kg

DRUGS (1)
  1. RECLAST [Suspect]
     Indication: OSTEOPENIA
     Dosage: 5 MG ONE DOSE IV 041
     Route: 042
     Dates: start: 20101014

REACTIONS (3)
  - MUSCULAR WEAKNESS [None]
  - BALANCE DISORDER [None]
  - PAIN IN EXTREMITY [None]
